FAERS Safety Report 14757409 (Version 1)
Quarter: 2018Q2

REPORT INFORMATION
  Report Type: Spontaneous
  Country: US (occurrence: US)
  Receive Date: 20180413
  Receipt Date: 20180413
  Transmission Date: 20180711
  Serious: No
  Sender: FDA-Public Use
  Company Number: US-BION-006695

PATIENT
  Age: 68 Year
  Sex: Male
  Weight: 102 kg

DRUGS (4)
  1. ALEVE [Suspect]
     Active Substance: NAPROXEN SODIUM
     Indication: PAIN
     Route: 048
     Dates: end: 20171008
  2. CALCIUM PLUS D 2 [Concomitant]
     Dosage: 500MG D 500MG CAL 40 VITAMIN K
  3. ASCORBIC ACID/CALCIUM/MINERALS NOS/RETINOL/TOCOPHERYL ACETATE/VITAMIN B NOS/VITAMINS NOS/ZINC [Concomitant]
  4. TAMSULOSIN [Concomitant]
     Active Substance: TAMSULOSIN
     Dosage: STRENGTH: 4MG

REACTIONS (5)
  - Wrong technique in product usage process [Not Recovered/Not Resolved]
  - Rash generalised [Recovered/Resolved]
  - Incorrect drug administration duration [Not Recovered/Not Resolved]
  - Pruritus [Recovered/Resolved]
  - Drug prescribing error [Not Recovered/Not Resolved]

NARRATIVE: CASE EVENT DATE: 201710
